FAERS Safety Report 6252065-2 (Version None)
Quarter: 2009Q2

REPORT INFORMATION
  Report Type: 
  Country: None (occurrence: None)
  Receive Date: 20090629
  Receipt Date: 20090612
  Transmission Date: 20091009
  Serious: Yes (Hospitalization)
  Sender: FDA-Public Use
  Company Number: 8047523

PATIENT
  Age: 32 Year
  Sex: Female

DRUGS (3)
  1. PREDNISOLONE [Suspect]
     Indication: IMMUNOSUPPRESSION
  2. MYCOPHENOLATE MOFETIL [Suspect]
     Indication: IMMUNOSUPPRESSION
  3. TACROLIMUS [Suspect]
     Indication: IMMUNOSUPPRESSION

REACTIONS (6)
  - CHOLECYSTITIS ACUTE [None]
  - CYTOMEGALOVIRUS INFECTION [None]
  - GALLBLADDER PERFORATION [None]
  - HAEMOBILIA [None]
  - HYPOTENSION [None]
  - TACHYCARDIA [None]
